FAERS Safety Report 4412826-9 (Version None)
Quarter: 2004Q3

REPORT INFORMATION
  Report Type: 
  Country: None (occurrence: None)
  Receive Date: 20040730
  Receipt Date: 20040730
  Transmission Date: 20050211
  Serious: Yes (Disabling)
  Sender: FDA-Public Use
  Company Number: None

PATIENT
  Sex: Male
  Weight: 86.1834 kg

DRUGS (2)
  1. EPINEPHRINE [Suspect]
     Dosage: 2 DOSES INTRAVENOUS
     Route: 042
  2. BENADRYL [Suspect]
     Dosage: 2 DOSES INTRAVENOUS
     Route: 042

REACTIONS (4)
  - ASTHENIA [None]
  - BURNING SENSATION [None]
  - PAIN IN EXTREMITY [None]
  - TREMOR [None]
